FAERS Safety Report 24033150 (Version 2)
Quarter: 2024Q3

REPORT INFORMATION
  Report Type: Spontaneous
  Country: JP (occurrence: JP)
  Receive Date: 20240701
  Receipt Date: 20240712
  Transmission Date: 20241016
  Serious: Yes (Life-Threatening, Hospitalization)
  Sender: TEVA
  Company Number: JP-TEVA-VS-3214292

PATIENT
  Age: 24 Year
  Sex: Female

DRUGS (3)
  1. VERAPAMIL [Suspect]
     Active Substance: VERAPAMIL HYDROCHLORIDE
     Indication: Atrial tachycardia
     Route: 065
  2. ADENOSINE TRIPHOSPHATE [Suspect]
     Active Substance: ADENOSINE TRIPHOSPHATE
     Indication: Atrial tachycardia
     Route: 065
  3. PILSICAINIDE [Suspect]
     Active Substance: PILSICAINIDE
     Indication: Atrial tachycardia
     Route: 065

REACTIONS (1)
  - Drug ineffective [Unknown]
